FAERS Safety Report 10744636 (Version 1)
Quarter: 2015Q1

REPORT INFORMATION
  Report Type: Spontaneous
  Country: US (occurrence: None)
  Receive Date: 20150126
  Receipt Date: 20150126
  Transmission Date: 20150721
  Serious: No
  Sender: FDA-Public Use
  Company Number: None

PATIENT
  Age: 02 Year
  Sex: Female

DRUGS (1)
  1. TRIAMCINOLONE [Suspect]
     Active Substance: TRIAMCINOLONE
     Indication: OEDEMA
     Dosage: TUBE AS NEEDED APPLIED TO A SURGACE, USULALLY THE SKIN
     Dates: start: 20120901, end: 20141012

REACTIONS (7)
  - Alopecia [None]
  - Eczema [None]
  - Therapy cessation [None]
  - Unevaluable event [None]
  - Drug dependence [None]
  - Insomnia [None]
  - Pain [None]

NARRATIVE: CASE EVENT DATE: 20150124
